FAERS Safety Report 22031045 (Version 3)
Quarter: 2023Q2

REPORT INFORMATION
  Report Type: Report from Study
  Country: US (occurrence: US)
  Receive Date: 20230223
  Receipt Date: 20230424
  Transmission Date: 20230722
  Serious: Yes (Other)
  Sender: FDA-Public Use
  Company Number: US-BEH-2023155547

PATIENT
  Age: 8 Year
  Sex: Male
  Weight: 52.154 kg

DRUGS (2)
  1. BERINERT [Suspect]
     Active Substance: HUMAN C1-ESTERASE INHIBITOR
     Indication: Hereditary angioedema
     Dosage: UNK
     Route: 058
     Dates: start: 20210326
  2. BERINERT [Suspect]
     Active Substance: HUMAN C1-ESTERASE INHIBITOR
     Indication: Prophylaxis
     Dosage: 3000 INTERNATIONAL UNIT/KILOGRAM, BIW
     Route: 058

REACTIONS (4)
  - Peripheral swelling [Unknown]
  - Swelling face [Unknown]
  - Weight increased [Unknown]
  - Hereditary angioedema [Recovered/Resolved]
